FAERS Safety Report 7612116-7 (Version None)
Quarter: 2011Q3

REPORT INFORMATION
  Report Type: 
  Country: None (occurrence: None)
  Receive Date: 20110715
  Receipt Date: 20110704
  Transmission Date: 20111222
  Serious: Yes (Hospitalization)
  Sender: FDA-Public Use
  Company Number: JP-ELI_LILLY_AND_COMPANY-JP201106005275

PATIENT
  Sex: Female
  Weight: 59.05 kg

DRUGS (7)
  1. KINEDAK [Concomitant]
     Dosage: 150 MG, QD
     Route: 048
     Dates: start: 20110530
  2. BYETTA [Suspect]
     Indication: TYPE 2 DIABETES MELLITUS
     Dosage: 5 UNK, BID
     Route: 058
     Dates: start: 20110614, end: 20110616
  3. METFORMIN HCL [Concomitant]
     Dosage: 750 MG, QD
     Route: 048
     Dates: start: 20101214, end: 20110617
  4. LANTUS [Concomitant]
     Indication: TYPE 2 DIABETES MELLITUS
     Dosage: UNK
     Dates: start: 20110315, end: 20110613
  5. MEXITIL [Concomitant]
     Dosage: 200 MG, QD
     Route: 048
     Dates: start: 20110614
  6. APIDRA [Concomitant]
     Indication: TYPE 2 DIABETES MELLITUS
     Dosage: UNK
     Dates: start: 20110501, end: 20110613
  7. METFORMIN HCL [Concomitant]
     Indication: TYPE 2 DIABETES MELLITUS
     Dosage: 500 MG, QD
     Route: 048
     Dates: start: 20091111

REACTIONS (1)
  - DIABETIC KETOACIDOSIS [None]
